FAERS Safety Report 6684928-8 (Version None)
Quarter: 2010Q2

REPORT INFORMATION
  Report Type: 
  Country: None (occurrence: None)
  Receive Date: 20100416
  Receipt Date: 20100408
  Transmission Date: 20101027
  Serious: Yes (Hospitalization)
  Sender: FDA-Public Use
  Company Number: IT-CELGENEUS-083-20785-10040720

PATIENT
  Sex: Female
  Weight: 37 kg

DRUGS (2)
  1. THALIDOMIDE [Suspect]
     Route: 048
     Dates: start: 20091026, end: 20100205
  2. THALIDOMIDE [Suspect]
     Route: 048
     Dates: start: 20100206

REACTIONS (1)
  - OPTIC NEURITIS [None]
